FAERS Safety Report 9824769 (Version 4)
Quarter: 2014Q1

REPORT INFORMATION
  Report Type: Report from Study
  Country: CA (occurrence: CA)
  Receive Date: 20140117
  Receipt Date: 20140301
  Transmission Date: 20141002
  Serious: Yes (Other)
  Sender: FDA-Public Use
  Company Number: CA-ROCHE-1156242

PATIENT
  Age: 53 Year
  Sex: Female
  Weight: 77.18 kg

DRUGS (10)
  1. RITUXAN [Suspect]
     Indication: RHEUMATOID ARTHRITIS
     Route: 042
     Dates: start: 20120314
  2. FOLIC ACID [Suspect]
     Indication: PRODUCT USED FOR UNKNOWN INDICATION
     Route: 065
     Dates: end: 201310
  3. METHOTREXATE [Suspect]
     Indication: PRODUCT USED FOR UNKNOWN INDICATION
     Route: 065
     Dates: end: 201310
  4. ENALAPRIL [Concomitant]
     Indication: BLOOD PRESSURE
  5. DIPHENHYDRAMINE HCL [Concomitant]
     Indication: PREMEDICATION
     Route: 048
     Dates: start: 20120314, end: 20120314
  6. ACETAMINOPHEN [Concomitant]
     Indication: PREMEDICATION
     Route: 048
     Dates: start: 20120314, end: 20120314
  7. METHYLPREDNISOLONE [Concomitant]
     Indication: PREMEDICATION
     Route: 042
     Dates: start: 20120314, end: 20120314
  8. SYNTHROID [Concomitant]
  9. CYMBALTA [Concomitant]
  10. VITAMIN B12 [Concomitant]

REACTIONS (11)
  - Hepatic enzyme increased [Unknown]
  - Infusion related reaction [Recovered/Resolved]
  - Rash [Unknown]
  - Acne [Recovering/Resolving]
  - Blood pressure increased [Not Recovered/Not Resolved]
  - Skin infection [Not Recovered/Not Resolved]
  - Rheumatoid arthritis [Not Recovered/Not Resolved]
  - Cough [Unknown]
  - Somnolence [Unknown]
  - Abdominal pain upper [Recovered/Resolved]
  - Diarrhoea [Recovered/Resolved]
